FAERS Safety Report 13859718 (Version 1)
Quarter: 2017Q3

REPORT INFORMATION
  Report Type: Spontaneous
  Country: US (occurrence: US)
  Receive Date: 20170811
  Receipt Date: 20170811
  Transmission Date: 20171127
  Serious: Yes (Other)
  Sender: FDA-Public Use
  Company Number: None

PATIENT
  Age: 52 Year
  Sex: Female
  Weight: 87.17 kg

DRUGS (1)
  1. BUPRENORPHINE AND NALOXONE [Suspect]
     Active Substance: BUPRENORPHINE\NALOXONE
     Indication: DRUG ABUSER
     Dates: start: 20170727, end: 20170807

REACTIONS (6)
  - Headache [None]
  - Muscle spasms [None]
  - Nausea [None]
  - Diarrhoea [None]
  - Drug dependence [None]
  - Tremor [None]

NARRATIVE: CASE EVENT DATE: 20170727
